FAERS Safety Report 8789994 (Version 1)
Quarter: 2012Q4

REPORT INFORMATION
  Report Type: 
  Country: US (occurrence: US)
  Receive Date: 20120917
  Receipt Date: 20120917
  Transmission Date: 20130627
  Serious: Yes (Hospitalization)
  Sender: FDA-Public Use
  Company Number: US-SANOFI-AVENTIS-2012SA065556

PATIENT
  Sex: Female

DRUGS (3)
  1. LANTUS [Suspect]
     Indication: TYPE 2 DIABETES MELLITUS
     Dosage: Dose:10 unit(s)
     Route: 058
     Dates: start: 201207
  2. SOLOSTAR [Suspect]
     Indication: TYPE 2 DIABETES MELLITUS
     Dates: start: 201207
  3. HUMALOG [Concomitant]
     Dates: start: 201207

REACTIONS (2)
  - Ulcer haemorrhage [Unknown]
  - Infected skin ulcer [Unknown]
